FAERS Safety Report 25619054 (Version 1)
Quarter: 2025Q3

REPORT INFORMATION
  Report Type: Spontaneous
  Country: EU (occurrence: EU)
  Receive Date: 20250729
  Receipt Date: 20250729
  Transmission Date: 20251020
  Serious: Yes (Hospitalization)
  Sender: MYLAN
  Company Number: None

PATIENT
  Age: 87 Year
  Sex: Female
  Weight: 43.7 kg

DRUGS (16)
  1. DOXAZOSIN [Interacting]
     Active Substance: DOXAZOSIN MESYLATE
     Indication: Hypertension
     Dosage: 4 MILLIGRAM, QD (1-0-0)
     Dates: start: 20250121, end: 20250616
  2. DOXAZOSIN [Interacting]
     Active Substance: DOXAZOSIN MESYLATE
     Dosage: 4 MILLIGRAM, QD (1-0-0)
     Route: 048
     Dates: start: 20250121, end: 20250616
  3. DOXAZOSIN [Interacting]
     Active Substance: DOXAZOSIN MESYLATE
     Dosage: 4 MILLIGRAM, QD (1-0-0)
     Route: 048
     Dates: start: 20250121, end: 20250616
  4. DOXAZOSIN [Interacting]
     Active Substance: DOXAZOSIN MESYLATE
     Dosage: 4 MILLIGRAM, QD (1-0-0)
     Dates: start: 20250121, end: 20250616
  5. TELMISARTAN [Interacting]
     Active Substance: TELMISARTAN
     Indication: Hypertension
     Dosage: 160 MILLIGRAM, QD (80 MILLIGRAM 2-0-0)
     Dates: start: 20250213, end: 20250616
  6. TELMISARTAN [Interacting]
     Active Substance: TELMISARTAN
     Dosage: 160 MILLIGRAM, QD (80 MILLIGRAM 2-0-0)
     Route: 048
     Dates: start: 20250213, end: 20250616
  7. TELMISARTAN [Interacting]
     Active Substance: TELMISARTAN
     Dosage: 160 MILLIGRAM, QD (80 MILLIGRAM 2-0-0)
     Route: 048
     Dates: start: 20250213, end: 20250616
  8. TELMISARTAN [Interacting]
     Active Substance: TELMISARTAN
     Dosage: 160 MILLIGRAM, QD (80 MILLIGRAM 2-0-0)
     Dates: start: 20250213, end: 20250616
  9. AMLODIPINE [Interacting]
     Active Substance: AMLODIPINE BESYLATE
     Indication: Hypertension
     Dosage: 10 MILLIGRAM, QD (0-0-1)
     Dates: start: 20250121, end: 20250616
  10. AMLODIPINE [Interacting]
     Active Substance: AMLODIPINE BESYLATE
     Dosage: 10 MILLIGRAM, QD (0-0-1)
     Route: 048
     Dates: start: 20250121, end: 20250616
  11. AMLODIPINE [Interacting]
     Active Substance: AMLODIPINE BESYLATE
     Dosage: 10 MILLIGRAM, QD (0-0-1)
     Route: 048
     Dates: start: 20250121, end: 20250616
  12. AMLODIPINE [Interacting]
     Active Substance: AMLODIPINE BESYLATE
     Dosage: 10 MILLIGRAM, QD (0-0-1)
     Dates: start: 20250121, end: 20250616
  13. FUROSEMIDE [Interacting]
     Active Substance: FUROSEMIDE
     Indication: Cardiac failure acute
     Dosage: 40 MILLIGRAM, BID (1-1-0)
     Dates: start: 20250603, end: 20250606
  14. FUROSEMIDE [Interacting]
     Active Substance: FUROSEMIDE
     Dosage: 40 MILLIGRAM, BID (1-1-0)
     Route: 048
     Dates: start: 20250603, end: 20250606
  15. FUROSEMIDE [Interacting]
     Active Substance: FUROSEMIDE
     Dosage: 40 MILLIGRAM, BID (1-1-0)
     Route: 048
     Dates: start: 20250603, end: 20250606
  16. FUROSEMIDE [Interacting]
     Active Substance: FUROSEMIDE
     Dosage: 40 MILLIGRAM, BID (1-1-0)
     Dates: start: 20250603, end: 20250606

REACTIONS (1)
  - Acute kidney injury [Recovering/Resolving]

NARRATIVE: CASE EVENT DATE: 20250616
